FAERS Safety Report 18434157 (Version 2)
Quarter: 2021Q1

REPORT INFORMATION
  Report Type: Spontaneous
  Country: US (occurrence: US)
  Receive Date: 20201027
  Receipt Date: 20210105
  Transmission Date: 20210419
  Serious: No
  Sender: FDA-Public Use
  Company Number: US-BRISTOL-MYERS SQUIBB COMPANY-BMS-2020-089619

PATIENT
  Age: 57 Year
  Sex: Female

DRUGS (1)
  1. NULOJIX [Suspect]
     Active Substance: BELATACEPT
     Indication: PRODUCT USED FOR UNKNOWN INDICATION
     Dosage: 600 MG OVER 30 MINS
     Route: 042
     Dates: start: 20201006

REACTIONS (2)
  - Product storage error [Unknown]
  - Poor venous access [Unknown]

NARRATIVE: CASE EVENT DATE: 20201007
